FAERS Safety Report 4632243-6 (Version None)
Quarter: 2005Q2

REPORT INFORMATION
  Report Type: 
  Country: None (occurrence: None)
  Receive Date: 20050411
  Receipt Date: 20050124
  Transmission Date: 20051028
  Serious: Yes (Hospitalization)
  Sender: FDA-Public Use
  Company Number: JP-ROCHE-393430

PATIENT
  Age: 24 Year
  Sex: Male

DRUGS (23)
  1. CELLCEPT [Suspect]
     Route: 048
     Dates: start: 20050113, end: 20050118
  2. CELLCEPT [Suspect]
     Route: 048
     Dates: start: 20050120, end: 20050124
  3. CELLCEPT [Suspect]
     Route: 048
     Dates: start: 20050125, end: 20050127
  4. CELLCEPT [Suspect]
     Route: 048
     Dates: start: 20050128, end: 20050131
  5. CELLCEPT [Suspect]
     Route: 048
     Dates: start: 20050201, end: 20050208
  6. CELLCEPT [Suspect]
     Route: 048
     Dates: start: 20050209, end: 20050210
  7. CELLCEPT [Suspect]
     Route: 048
     Dates: start: 20050211, end: 20050212
  8. CELLCEPT [Suspect]
     Route: 048
     Dates: start: 20050213, end: 20050216
  9. CELLCEPT [Suspect]
     Route: 048
     Dates: start: 20050217, end: 20050324
  10. RITUXAN [Suspect]
     Route: 041
     Dates: start: 20050107, end: 20050107
  11. RITUXAN [Suspect]
     Route: 041
     Dates: start: 20050113, end: 20050113
  12. SPANIDIN [Suspect]
     Route: 042
     Dates: start: 20050119, end: 20050121
  13. SPANIDIN [Suspect]
     Route: 042
     Dates: start: 20050131, end: 20050206
  14. PROGRAF [Concomitant]
     Dates: start: 20050115
  15. PREDONINE [Concomitant]
     Route: 048
     Dates: start: 20050120
  16. DENOSINE [Concomitant]
     Route: 042
     Dates: start: 20050120, end: 20050202
  17. PROTHIADEN [Concomitant]
     Route: 048
  18. HALCION [Concomitant]
     Route: 048
  19. ULGUT [Concomitant]
     Route: 048
  20. SENIRAN [Concomitant]
     Route: 048
  21. LASIX [Concomitant]
     Route: 048
  22. RABEPRAZOLE SODIUM [Concomitant]
     Route: 048
  23. SILECE [Concomitant]
     Route: 048

REACTIONS (4)
  - EPIDIDYMITIS [None]
  - IMMUNOSUPPRESSION [None]
  - PANCYTOPENIA [None]
  - POST PROCEDURAL COMPLICATION [None]
